FAERS Safety Report 23600116 (Version 1)
Quarter: 2024Q1

REPORT INFORMATION
  Report Type: Spontaneous
  Country: BE (occurrence: BE)
  Receive Date: 20240306
  Receipt Date: 20240306
  Transmission Date: 20240410
  Serious: Yes (Life-Threatening, Hospitalization)
  Sender: FDA-Public Use
  Company Number: BE-STADA-206718

PATIENT
  Age: 7 Decade
  Sex: Male

DRUGS (3)
  1. EVEROLIMUS [Suspect]
     Active Substance: EVEROLIMUS
     Indication: Immunosuppressant drug therapy
     Dosage: UNK
     Route: 065
  2. MYCOPHENOLIC ACID [Suspect]
     Active Substance: MYCOPHENOLIC ACID
     Indication: Immunosuppressant drug therapy
     Dosage: 1 G, QD
     Route: 065
  3. HYDROXYCHLOROQUINE [Concomitant]
     Active Substance: HYDROXYCHLOROQUINE
     Indication: COVID-19
     Dosage: 400 MG, 0.5 DAY (ON DAY 1)
     Route: 065

REACTIONS (6)
  - Confusional state [Recovered/Resolved]
  - Hypercapnia [Recovered/Resolved]
  - Bacterial infection [Unknown]
  - COVID-19 [Recovered/Resolved]
  - Neurological decompensation [Recovered/Resolved]
  - Pneumonia [Unknown]
